FAERS Safety Report 6192385-3 (Version None)
Quarter: 2009Q2

REPORT INFORMATION
  Report Type: 
  Country: None (occurrence: None)
  Receive Date: 20090518
  Receipt Date: 20080418
  Transmission Date: 20091009
  Serious: Yes (Hospitalization, Other)
  Sender: FDA-Public Use
  Company Number: US-ASTRAZENECA-2007UW21501

PATIENT
  Age: 15022 Day
  Sex: Male
  Weight: 112 kg

DRUGS (12)
  1. SEROQUEL [Suspect]
     Indication: ANXIETY
     Route: 048
     Dates: start: 19980101
  2. SEROQUEL [Suspect]
     Indication: DEPRESSION
     Route: 048
     Dates: start: 19980101
  3. SEROQUEL [Suspect]
     Indication: SCHIZOPHRENIA
     Route: 048
     Dates: start: 19980101
  4. SEROQUEL [Suspect]
     Dosage: 100- 900 MG
     Route: 048
     Dates: start: 20050111
  5. SEROQUEL [Suspect]
     Dosage: 100- 900 MG
     Route: 048
     Dates: start: 20050111
  6. SEROQUEL [Suspect]
     Dosage: 100- 900 MG
     Route: 048
     Dates: start: 20050111
  7. ACETAMINOPHEN [Concomitant]
     Indication: PAIN
     Route: 048
  8. PAXIL [Concomitant]
     Route: 065
  9. LIPITOR [Concomitant]
     Route: 048
  10. NEURONTIN [Concomitant]
     Indication: PAIN
     Route: 048
  11. HYDROCHLOROTHIAZIDE [Concomitant]
     Route: 048
  12. THORAZINE [Concomitant]
     Route: 048

REACTIONS (8)
  - DIABETES MELLITUS [None]
  - HALLUCINATION, AUDITORY [None]
  - HYPERCHOLESTEROLAEMIA [None]
  - PAIN [None]
  - PARANOIA [None]
  - PSYCHOTIC DISORDER [None]
  - SLEEP APNOEA SYNDROME [None]
  - SUICIDAL IDEATION [None]
